FAERS Safety Report 23868084 (Version 1)
Quarter: 2024Q2

REPORT INFORMATION
  Report Type: Spontaneous
  Country: US (occurrence: US)
  Receive Date: 20240517
  Receipt Date: 20240517
  Transmission Date: 20240715
  Serious: No
  Sender: FDA-Public Use
  Company Number: US-TEVA-VS-3193586

PATIENT
  Sex: Female

DRUGS (1)
  1. ADDERALL [Suspect]
     Active Substance: AMPHETAMINE ASPARTATE\AMPHETAMINE SULFATE\DEXTROAMPHETAMINE SACCHARATE\DEXTROAMPHETAMINE SULFATE
     Indication: Attention deficit hyperactivity disorder
     Route: 065
     Dates: start: 2012

REACTIONS (11)
  - Electric shock sensation [Unknown]
  - Fatigue [Unknown]
  - Off label use [Unknown]
  - Depression [Unknown]
  - Myalgia [Unknown]
  - Brain fog [Unknown]
  - Apathy [Unknown]
  - Palpitations [Unknown]
  - Product availability issue [Unknown]
  - Drug ineffective [Unknown]
  - Product physical issue [Unknown]
